FAERS Safety Report 13555481 (Version 1)
Quarter: 2017Q2

REPORT INFORMATION
  Report Type: Spontaneous
  Country: US (occurrence: US)
  Receive Date: 20170517
  Receipt Date: 20170517
  Transmission Date: 20170830
  Serious: Yes (Death, Hospitalization)
  Sender: FDA-Public Use
  Company Number: US-SA-2017SA041755

PATIENT
  Age: 55 Year
  Sex: Female
  Weight: 62.59 kg

DRUGS (4)
  1. KEPPRA [Concomitant]
     Active Substance: LEVETIRACETAM
     Indication: SEIZURE
     Dates: end: 20170220
  2. AUBAGIO [Suspect]
     Active Substance: TERIFLUNOMIDE
     Indication: MULTIPLE SCLEROSIS
     Route: 048
     Dates: start: 20130910, end: 20170219
  3. COUMADIN [Concomitant]
     Active Substance: WARFARIN SODIUM
     Dates: end: 20170220
  4. PROZAC [Concomitant]
     Active Substance: FLUOXETINE HYDROCHLORIDE
     Indication: DEPRESSION
     Dates: start: 20170214, end: 20170220

REACTIONS (10)
  - Sepsis [Fatal]
  - Lethargy [Fatal]
  - Hyperhidrosis [Fatal]
  - Pneumonia [Fatal]
  - Nausea [Fatal]
  - Asthenia [Fatal]
  - Vomiting [Fatal]
  - Hypoxia [Fatal]
  - Dehydration [Fatal]
  - Anticoagulation drug level above therapeutic [Fatal]

NARRATIVE: CASE EVENT DATE: 2017
